FAERS Safety Report 9482359 (Version 1)
Quarter: 2013Q3

REPORT INFORMATION
  Report Type: Report from Study
  Country: US (occurrence: US)
  Receive Date: 20130828
  Receipt Date: 20130828
  Transmission Date: 20140515
  Serious: Yes (Other)
  Sender: FDA-Public Use
  Company Number: US-SANOFI-AVENTIS-2013SA085198

PATIENT
  Age: 55 Year
  Sex: Female

DRUGS (1)
  1. AUBAGIO [Suspect]
     Route: 048
     Dates: start: 20130730, end: 20130805

REACTIONS (5)
  - Anaphylactic reaction [Unknown]
  - Dyspnoea [Unknown]
  - Rash [Unknown]
  - Urticaria [Unknown]
  - Local swelling [Unknown]
